FAERS Safety Report 8420756-0 (Version None)
Quarter: 2012Q2

REPORT INFORMATION
  Report Type: 
  Country: None (occurrence: None)
  Receive Date: 20120608
  Receipt Date: 20120605
  Transmission Date: 20120825
  Serious: Yes (Other)
  Sender: FDA-Public Use
  Company Number: US-PFIZER INC-2012135541

PATIENT
  Sex: Male

DRUGS (1)
  1. CHANTIX [Suspect]
     Dosage: UNK
     Dates: start: 20120401

REACTIONS (4)
  - NAUSEA [None]
  - DEPRESSION [None]
  - FEELING ABNORMAL [None]
  - HEAD DISCOMFORT [None]
